FAERS Safety Report 10953471 (Version 1)
Quarter: 2015Q1

REPORT INFORMATION
  Report Type: Spontaneous
  Country: US (occurrence: US)
  Receive Date: 20150325
  Receipt Date: 20150325
  Transmission Date: 20150721
  Serious: No
  Sender: FDA-Public Use
  Company Number: US-PFIZER INC-2015099333

PATIENT

DRUGS (1)
  1. LYRICA [Suspect]
     Active Substance: PREGABALIN
     Indication: FIBROMYALGIA
     Dosage: UNK

REACTIONS (10)
  - Drug ineffective [Unknown]
  - Gait disturbance [Unknown]
  - Emotional disorder [Unknown]
  - Pain [Unknown]
  - Pruritus [Unknown]
  - Sciatica [Unknown]
  - Migraine [Unknown]
  - Fall [Unknown]
  - Weight increased [Unknown]
  - Balance disorder [Unknown]
